FAERS Safety Report 6463110-3 (Version None)
Quarter: 2009Q4

REPORT INFORMATION
  Report Type: 
  Country: None (occurrence: None)
  Receive Date: 20091123
  Receipt Date: 20091111
  Transmission Date: 20100525
  Serious: Yes (Hospitalization)
  Sender: FDA-Public Use
  Company Number: 2009017700

PATIENT
  Age: 76 Year
  Sex: Male

DRUGS (3)
  1. TRISENOX [Suspect]
     Indication: ACUTE MYELOID LEUKAEMIA
     Dosage: (0.2 MG/KG, D1-5), INTRAVENOUS
     Route: 042
     Dates: start: 20090921
  2. ASCORBIC ACID [Suspect]
     Indication: ACUTE MYELOID LEUKAEMIA
     Dosage: (1000 MG, D1-5), INTRAVENOUS
     Route: 042
     Dates: start: 20090921
  3. DECITABINE (DECITABINE) [Suspect]
     Indication: ACUTE MYELOID LEUKAEMIA
     Dosage: (20 MG/M2, D1-5), INTRAVENOUS
     Route: 042
     Dates: start: 20090921

REACTIONS (9)
  - BRAIN NATRIURETIC PEPTIDE INCREASED [None]
  - DEVICE RELATED SEPSIS [None]
  - DYSPNOEA [None]
  - HEADACHE [None]
  - HYPERDYNAMIC LEFT VENTRICLE [None]
  - JOINT SWELLING [None]
  - MEDICAL DEVICE COMPLICATION [None]
  - MIDDLE INSOMNIA [None]
  - VENOUS INSUFFICIENCY [None]
